FAERS Safety Report 9288612 (Version 4)
Quarter: 2013Q4

REPORT INFORMATION
  Report Type: Spontaneous
  Country: NL (occurrence: NL)
  Receive Date: 20130514
  Receipt Date: 20131129
  Transmission Date: 20140711
  Serious: Yes (Other)
  Sender: FDA-Public Use
  Company Number: NL-ACTELION-A-CH2013-82844

PATIENT
  Age: 24 Year
  Sex: Female
  Weight: 64 kg

DRUGS (13)
  1. TRACLEER [Suspect]
     Indication: SKIN ULCER
     Dosage: 125 MG, BID
     Route: 048
     Dates: end: 20130418
  2. TRACLEER [Suspect]
     Dosage: 62.5 MG, BID
     Route: 048
     Dates: start: 20120615
  3. TRACLEER [Suspect]
     Dosage: 125 MG, BID
     Route: 048
     Dates: start: 20130508
  4. PREDNISON [Concomitant]
     Dosage: UNK
     Dates: start: 20120208
  5. NIVAQUINE [Concomitant]
     Dosage: UNK
     Dates: start: 20120124
  6. METHOTREXATE [Concomitant]
     Dosage: UNK
     Dates: start: 20120614
  7. KETENSIN [Concomitant]
     Dosage: UNK
     Dates: start: 20120615
  8. ASCAL [Concomitant]
     Dosage: UNK
     Dates: start: 20120615
  9. PANTOZOL [Concomitant]
     Dosage: UNK
     Dates: start: 20120615
  10. CALCICHEW [Concomitant]
  11. NIFEDIPINE [Concomitant]
  12. FOLIC ACID [Concomitant]
  13. CARBASALATE [Concomitant]

REACTIONS (3)
  - Abortion spontaneous [Recovered/Resolved]
  - Evacuation of retained products of conception [Recovered/Resolved]
  - Pregnancy [Recovered/Resolved]
